FAERS Safety Report 23274441 (Version 1)
Quarter: 2023Q4

REPORT INFORMATION
  Report Type: Spontaneous
  Country: US (occurrence: None)
  Receive Date: 20231208
  Receipt Date: 20231208
  Transmission Date: 20240110
  Serious: No
  Sender: FDA-Public Use
  Company Number: 2023A276429

PATIENT
  Sex: Male

DRUGS (3)
  1. SEROQUEL [Suspect]
     Active Substance: QUETIAPINE FUMARATE
     Dosage: UNKNOWN
     Route: 048
  2. AMBIEN [Suspect]
     Active Substance: ZOLPIDEM TARTRATE
  3. TEMAZEPAM [Suspect]
     Active Substance: TEMAZEPAM

REACTIONS (7)
  - Weight increased [Unknown]
  - Lethargy [Unknown]
  - Insomnia [Unknown]
  - Glucose tolerance impaired [Unknown]
  - Therapeutic product effect variable [Unknown]
  - Drug resistance [Unknown]
  - Inability to afford medication [Unknown]
